FAERS Safety Report 6704622-4 (Version None)
Quarter: 2010Q2

REPORT INFORMATION
  Report Type: 
  Country: None (occurrence: None)
  Receive Date: 20100430
  Receipt Date: 20100423
  Transmission Date: 20101027
  Serious: Yes (Death, Hospitalization)
  Sender: FDA-Public Use
  Company Number: GB-TEVA-232103ISR

PATIENT
  Age: 19 Year
  Sex: Male

DRUGS (2)
  1. DICLOFENAC [Suspect]
     Indication: SUICIDE ATTEMPT
     Route: 048
  2. NEFOPAM HYDROCHLORIDE [Suspect]
     Indication: SUICIDE ATTEMPT
     Route: 048

REACTIONS (3)
  - CARDIO-RESPIRATORY ARREST [None]
  - CONVULSION [None]
  - INTENTIONAL OVERDOSE [None]
